FAERS Safety Report 10694983 (Version 1)
Quarter: 2015Q1

REPORT INFORMATION
  Report Type: Spontaneous
  Country: US (occurrence: US)
  Receive Date: 20150107
  Receipt Date: 20150107
  Transmission Date: 20150721
  Serious: No
  Sender: FDA-Public Use
  Company Number: US-009507513-1409USA013003

PATIENT
  Age: 33 Year
  Sex: Female

DRUGS (1)
  1. CLARITIN-D 24 HOUR [Suspect]
     Active Substance: LORATADINE\PSEUDOEPHEDRINE SULFATE
     Indication: SINUS HEADACHE
     Dosage: UNK, UNKNOWN
     Route: 048
     Dates: start: 20140917

REACTIONS (3)
  - Drug ineffective for unapproved indication [Unknown]
  - Pain [Unknown]
  - Off label use [Unknown]

NARRATIVE: CASE EVENT DATE: 20140917
